FAERS Safety Report 7637324-0 (Version None)
Quarter: 2011Q3

REPORT INFORMATION
  Report Type: 
  Country: None (occurrence: None)
  Receive Date: 20110726
  Receipt Date: 20110720
  Transmission Date: 20111222
  Serious: Yes (Death, Hospitalization, Other)
  Sender: FDA-Public Use
  Company Number: CA-GENZYME-FLUD-1000323

PATIENT
  Sex: Male
  Weight: 134 kg

DRUGS (65)
  1. BUDESONIDE [Concomitant]
     Indication: PROPHYLAXIS AGAINST GRAFT VERSUS HOST DISEASE
     Dosage: 9 MG, QD
     Route: 048
     Dates: start: 20101022, end: 20101102
  2. ATIVAN [Concomitant]
     Indication: PRODUCT USED FOR UNKNOWN INDICATION
     Dosage: 1-2 MG, QHS, PRN
     Route: 048
  3. SEPTRA [Concomitant]
     Indication: PRODUCT USED FOR UNKNOWN INDICATION
     Dosage: 2 UNK, TIW ON MONDAY, WEDNESDAY AND FRIDAY
     Route: 048
  4. NORVASC [Concomitant]
     Indication: PRODUCT USED FOR UNKNOWN INDICATION
     Dosage: 10 MG, QD
     Route: 048
     Dates: start: 20101027, end: 20101102
  5. PREDNISONE [Concomitant]
     Indication: HEPATIC FAILURE
     Dosage: 100 MG, BID
     Route: 048
  6. ATROVENT [Concomitant]
     Indication: PRODUCT USED FOR UNKNOWN INDICATION
     Dosage: 4 6 PUFFS QID
  7. MOZOBIL [Suspect]
     Indication: ACUTE MYELOID LEUKAEMIA
     Dosage: 23 MG, UNK
     Route: 058
     Dates: start: 20100927, end: 20100927
  8. CIPROFLOXACIN [Concomitant]
     Indication: INFECTION PROPHYLAXIS
     Dosage: 500 MG, QD
     Route: 048
     Dates: start: 20100816, end: 20101025
  9. NORVASC [Concomitant]
     Indication: HYPERTENSION
     Dosage: 5 G, QD
     Route: 048
     Dates: start: 20100926, end: 20100930
  10. PIPERACILLIN AND TAZOBACTAM [Concomitant]
     Indication: FEBRILE NEUTROPENIA
     Dosage: 4.5 G, TID
     Route: 042
     Dates: start: 20101012, end: 20101017
  11. DEXAMETHASONE [Concomitant]
     Indication: NAUSEA
     Dosage: 10 MG, QD
     Route: 042
     Dates: start: 20100927, end: 20101001
  12. PREDNISONE [Concomitant]
     Indication: GRAFT VERSUS HOST DISEASE
     Dosage: 50 MG, UNK
     Route: 048
     Dates: start: 20101031
  13. ATENOLOL [Concomitant]
     Indication: PRODUCT USED FOR UNKNOWN INDICATION
     Dosage: 100 MG, QD
     Route: 048
  14. PREDNISONE [Concomitant]
     Indication: ACUTE GRAFT VERSUS HOST DISEASE IN SKIN
  15. FLUDARA [Suspect]
     Indication: ACUTE MYELOID LEUKAEMIA
     Dosage: 102 MG, UNK
     Route: 042
     Dates: start: 20100927, end: 20100930
  16. MYCOPHENOLATE MOFETIL [Concomitant]
     Indication: PRODUCT USED FOR UNKNOWN INDICATION
     Dosage: 1500 MG, UNK
     Route: 048
     Dates: start: 20101002
  17. IMOVANE [Concomitant]
     Indication: INSOMNIA
     Dosage: 7.5 MG, PRN
     Dates: start: 20101004, end: 20101023
  18. RANITIDINE [Concomitant]
     Indication: PROPHYLAXIS
     Dosage: 150 MG, BID
     Route: 048
     Dates: start: 20101016, end: 20101019
  19. DOMPERIDONE [Concomitant]
     Indication: NAUSEA
     Dosage: 10 MG, QHS
     Route: 048
     Dates: start: 20101016, end: 20101018
  20. MAXERAN [Concomitant]
     Indication: PROPHYLAXIS OF NAUSEA AND VOMITING
     Dosage: 30 MG, UNK
     Route: 042
     Dates: start: 20101003, end: 20101012
  21. CYCLOSPORINE [Concomitant]
     Dosage: 190 MG, BID
     Route: 042
     Dates: start: 20101015, end: 20101016
  22. CYCLOSPORINE [Concomitant]
     Dosage: 90 MG, UNK
     Route: 042
     Dates: start: 20101028, end: 20101030
  23. ESCITALOPRAM [Concomitant]
     Indication: PRODUCT USED FOR UNKNOWN INDICATION
     Dosage: 10 MG, QD
     Route: 048
  24. CYCLOSPORINE [Concomitant]
     Indication: GRAFT VERSUS HOST DISEASE
     Dosage: 150 MG, BID
     Route: 048
  25. MICAFUNGIN [Concomitant]
     Indication: INFECTION PROPHYLAXIS
     Dosage: 50 MG, QD
     Route: 042
     Dates: start: 20100927, end: 20101017
  26. CLONAZEPAM [Concomitant]
     Indication: DEPRESSION
     Dosage: 0.5 MG, BID
     Route: 048
     Dates: start: 20101026, end: 20101029
  27. MGSO4 AND KCL [Concomitant]
     Indication: PROPHYLAXIS
     Dosage: 5 G, PRN
     Route: 042
     Dates: start: 20101006, end: 20101030
  28. GANCICLOVIR [Concomitant]
     Indication: CYTOMEGALOVIRUS TEST POSITIVE
     Dosage: 600 MG, UNK
     Route: 042
     Dates: start: 20101026, end: 20101102
  29. METOPROLOL TARTRATE [Concomitant]
     Indication: BLOOD PRESSURE
     Dosage: 5 MG, TID
     Route: 048
     Dates: start: 20101013, end: 20101016
  30. MAGNESIUM OXIDE [Concomitant]
     Indication: SUPPLEMENTATION THERAPY
     Dosage: 835 MG, UNK
     Route: 048
     Dates: start: 20101017, end: 20101018
  31. LISINOPRIL [Concomitant]
     Indication: PRODUCT USED FOR UNKNOWN INDICATION
     Dosage: 10 MG, QD
     Route: 048
  32. CYCLOSPORINE [Concomitant]
     Dosage: 240 MG, UNK
     Route: 042
     Dates: start: 20101011, end: 20101013
  33. MAGNESIUM OXIDE [Concomitant]
     Indication: PRODUCT USED FOR UNKNOWN INDICATION
     Dosage: 835 MG, BID
     Route: 048
  34. PREDNISONE [Concomitant]
     Indication: HYPERBILIRUBINAEMIA
  35. MICARDIS [Concomitant]
     Indication: PRODUCT USED FOR UNKNOWN INDICATION
     Dosage: 80 MG, QD
     Route: 048
  36. LISINOPRIL [Concomitant]
     Indication: HYPERTENSION
     Dosage: 5 MG, QD
     Route: 048
     Dates: start: 20100927, end: 20101017
  37. GRANISETRON [Concomitant]
     Indication: NAUSEA
     Dosage: 1 MG, QD
     Route: 042
     Dates: start: 20100927, end: 20100930
  38. MORPHINE [Concomitant]
     Indication: HEADACHE
     Dosage: 2 MG, UNK
     Route: 042
     Dates: start: 20100927, end: 20100930
  39. CYCLOSPORINE [Concomitant]
     Dosage: 100 MG, UNK
     Route: 048
     Dates: start: 20101030, end: 20101102
  40. PREDNISONE [Concomitant]
     Indication: MUCOSAL INFLAMMATION
  41. FLUDARA [Suspect]
     Indication: BONE MARROW CONDITIONING REGIMEN
  42. PANTOPRAZOLE [Concomitant]
     Indication: PROPHYLAXIS
     Dosage: 40 MG, QD
     Route: 048
     Dates: start: 20100924, end: 20101004
  43. PHENYTOIN [Concomitant]
     Indication: PROPHYLAXIS OF NAUSEA AND VOMITING
     Dosage: 100 MG, TID
     Route: 048
     Dates: start: 20100926, end: 20101003
  44. LASIX [Concomitant]
     Indication: PROPHYLAXIS
     Dosage: 20 MG, BID
     Route: 042
     Dates: start: 20101015, end: 20101016
  45. ACYCLOVIR [Concomitant]
     Indication: ANTIVIRAL PROPHYLAXIS
     Dosage: 200 MG, BID
     Route: 048
     Dates: start: 20101003, end: 20101017
  46. ASPIRIN [Concomitant]
     Indication: PRODUCT USED FOR UNKNOWN INDICATION
     Dosage: 81 MG, QD
     Route: 048
  47. PREDNISONE [Concomitant]
     Indication: ACUTE GRAFT VERSUS HOST DISEASE IN INTESTINE
  48. VENTOLIN HFA [Concomitant]
     Indication: PRODUCT USED FOR UNKNOWN INDICATION
     Dosage: 4-6 PUFFS QID
  49. BUSULFAN [Suspect]
     Indication: BONE MARROW CONDITIONING REGIMEN
     Dosage: 300 MG, UNK
     Route: 042
     Dates: start: 20100927, end: 20100930
  50. NYSTATIN [Concomitant]
     Indication: OEDEMA MOUTH
     Dosage: 1.5 G, QS
     Route: 061
     Dates: start: 20101026, end: 20101102
  51. PEPCID [Concomitant]
     Indication: GASTROOESOPHAGEAL REFLUX PROPHYLAXIS
     Dosage: 20 MG, UNK
     Route: 042
     Dates: start: 20101003, end: 20101016
  52. BENADRYL [Concomitant]
     Indication: ALLERGY PROPHYLAXIS
     Dosage: 50 MG, TID
     Route: 042
     Dates: start: 20101004, end: 20101013
  53. MICAFUNGIN [Concomitant]
     Indication: ANTIFUNGAL PROPHYLAXIS
     Dosage: 50 MG, QD
     Route: 042
     Dates: start: 20101023, end: 20101024
  54. CYCLOSPORINE [Concomitant]
     Dosage: 280 MG, UNK
     Route: 042
     Dates: start: 20101001, end: 20101010
  55. CYCLOSPORINE [Concomitant]
     Dosage: 300 MG, UNK
     Route: 048
     Dates: start: 20101017, end: 20101017
  56. CYCLOSPORINE [Concomitant]
     Dosage: 100 MG, UNK
     Route: 048
     Dates: start: 20101018, end: 20101018
  57. CYCLOSPORINE [Concomitant]
     Indication: PRODUCT USED FOR UNKNOWN INDICATION
     Dosage: 50 MG, BID
     Route: 048
  58. HYDROMORPHONE HCL [Concomitant]
     Indication: PRODUCT USED FOR UNKNOWN INDICATION
     Dosage: 6 MG, Q12HR
     Route: 048
  59. PANTOPRAZOLE [Concomitant]
     Indication: PRODUCT USED FOR UNKNOWN INDICATION
     Dosage: 40 MG, QD
     Route: 042
  60. SOLU-MEDROL [Concomitant]
     Indication: PRODUCT USED FOR UNKNOWN INDICATION
     Dosage: 100 MG Q8HR
     Route: 042
  61. ALLOPURINOL [Concomitant]
     Indication: PROPHYLAXIS
     Dosage: 300 MG, TID
     Route: 048
     Dates: start: 20100924, end: 20101003
  62. GANCICLOVIR [Concomitant]
     Indication: CYTOMEGALOVIRUS INFECTION
     Dosage: UNK
     Route: 065
  63. CYCLOSPORINE [Concomitant]
     Dosage: 210 MG, UNK
     Route: 042
     Dates: start: 20101014, end: 20101014
  64. CYCLOSPORINE [Concomitant]
     Indication: HYPERBILIRUBINAEMIA
  65. NORVASC [Concomitant]
     Dosage: 5 MG, QD
     Route: 048

REACTIONS (16)
  - HYPOTENSION [None]
  - DEHYDRATION [None]
  - SEPSIS [None]
  - BACTERIAL SEPSIS [None]
  - ASPERGILLOSIS [None]
  - ACUTE GRAFT VERSUS HOST DISEASE IN INTESTINE [None]
  - CYSTITIS HAEMORRHAGIC [None]
  - RENAL FAILURE [None]
  - HERPES VIRUS INFECTION [None]
  - CYTOMEGALOVIRUS INFECTION [None]
  - ACUTE GRAFT VERSUS HOST DISEASE IN SKIN [None]
  - HEPATIC FAILURE [None]
  - RESPIRATORY FAILURE [None]
  - BK VIRUS INFECTION [None]
  - HYPERBILIRUBINAEMIA [None]
  - MUCOSAL INFLAMMATION [None]
